FAERS Safety Report 5136121-8 (Version None)
Quarter: 2006Q4

REPORT INFORMATION
  Report Type: 
  Country: None (occurrence: None)
  Receive Date: 20061027
  Receipt Date: 20060403
  Transmission Date: 20070319
  Serious: Yes (Other)
  Sender: FDA-Public Use
  Company Number: US-SP-2006-00787

PATIENT
  Age: 40 Year
  Sex: Female

DRUGS (5)
  1. ADACEL [Suspect]
     Indication: IMMUNISATION
     Route: 030
     Dates: start: 20060331
  2. TUBERSOL [Suspect]
     Indication: TUBERCULIN TEST
     Route: 023
  3. FOLIC ACID [Concomitant]
  4. ALBUTEROL [Concomitant]
  5. PRENATAL VITAMINS [Concomitant]

REACTIONS (3)
  - DRUG EXPOSURE DURING PREGNANCY [None]
  - PRE-ECLAMPSIA [None]
  - PREMATURE LABOUR [None]
